FAERS Safety Report 9383415 (Version 2)
Quarter: 2013Q3

REPORT INFORMATION
  Report Type: Spontaneous
  Country: DE (occurrence: DE)
  Receive Date: 20130704
  Receipt Date: 20130715
  Transmission Date: 20140515
  Serious: Yes (Hospitalization, Other)
  Sender: FDA-Public Use
  Company Number: DE-JNJFOC-20130700295

PATIENT
  Age: 72 Year
  Sex: Male
  Weight: 87 kg

DRUGS (3)
  1. XARELTO [Suspect]
     Indication: THROMBOSIS PROPHYLAXIS
     Route: 048
     Dates: start: 20130416, end: 20130521
  2. IBUPROFEN [Concomitant]
     Route: 048
     Dates: start: 20130501, end: 20130521
  3. ATORVASTATIN [Concomitant]
     Indication: HYPERLIPIDAEMIA
     Route: 048

REACTIONS (2)
  - Hepatocellular injury [Recovering/Resolving]
  - Haemorrhoidal haemorrhage [Recovering/Resolving]
